FAERS Safety Report 8930787 (Version 1)
Quarter: 2012Q4

REPORT INFORMATION
  Report Type: Report from Study
  Country: JP (occurrence: JP)
  Receive Date: 20121128
  Receipt Date: 20121128
  Transmission Date: 20130627
  Serious: Yes (Hospitalization)
  Sender: FDA-Public Use
  Company Number: JP-VERTEX PHARMACEUTICAL INC.-AE-2012-006240

PATIENT
  Age: 64 Year
  Sex: Male

DRUGS (29)
  1. VX-950 (TELAPREVIR) [Suspect]
     Indication: CHRONIC HEPATITIS C
     Dosage: 2250 mg, qd
     Route: 048
     Dates: start: 20120308
  2. REBETOL [Suspect]
     Indication: CHRONIC HEPATITIS C
     Dosage: 800 mg, qd
     Route: 048
     Dates: start: 20120308, end: 20120418
  3. REBETOL [Suspect]
     Dosage: 600 mg, qd
     Route: 048
     Dates: start: 20120419, end: 20120516
  4. REBETOL [Suspect]
     Dosage: 400 mg, qd
     Route: 048
     Dates: start: 20120517, end: 20120604
  5. REBETOL [Suspect]
     Dosage: 200 mg, qd
     Route: 048
     Dates: start: 20120628, end: 20120708
  6. REBETOL [Suspect]
     Dosage: 400 mg, qd
     Route: 048
     Dates: start: 20120709, end: 20120801
  7. REBETOL [Suspect]
     Dosage: 600 mg, qd
     Route: 048
     Dates: start: 20120802, end: 20120821
  8. PEGINTERFERON ALFA-2B [Suspect]
     Indication: CHRONIC HEPATITIS C
     Dosage: 1.5 ?g/kg, qw
     Route: 058
     Dates: start: 20120308, end: 20120404
  9. PEGINTERFERON ALFA-2B [Suspect]
     Dosage: 0.78 ?g/kg, qw
     Route: 058
     Dates: start: 20120405, end: 20120411
  10. PEGINTERFERON ALFA-2B [Suspect]
     Dosage: 1.5 ?g/kg, qw
     Route: 058
     Dates: start: 20120412, end: 20120703
  11. PEGINTERFERON ALFA-2B [Suspect]
     Dosage: 80 ?g/kg, qw
     Route: 058
     Dates: start: 20120710, end: 20120816
  12. XYZAL [Concomitant]
     Dosage: 5 mg, qd
     Route: 048
     Dates: start: 20120314, end: 20120611
  13. PURSENNID /00142207/ [Concomitant]
     Dosage: 24 mg, qd
     Route: 048
     Dates: start: 20120317, end: 20120611
  14. PARIET [Concomitant]
     Dosage: 10 mg, qd
     Route: 048
     Dates: start: 20120319
  15. GASMOTIN [Concomitant]
     Dosage: 15 mg, qd
     Route: 048
     Dates: start: 20120409, end: 20120822
  16. JZOLOFT [Concomitant]
     Dosage: 25 mg, qd
     Route: 048
     Dates: start: 20120409
  17. DEPAS [Concomitant]
     Dosage: 1 mg, qd
     Route: 048
  18. MAGMITT [Concomitant]
     Dosage: 990 mg, qd
     Route: 048
     Dates: end: 20120822
  19. VOLTAREN                           /00372301/ [Concomitant]
     Dosage: 25 mg, prn
     Route: 051
     Dates: start: 20120420
  20. EURAX H [Concomitant]
     Dosage: 50 g, prn
     Route: 061
     Dates: start: 20120312, end: 20120425
  21. ISODINE GARGLE [Concomitant]
     Dosage: UNK, prn
     Route: 051
     Dates: start: 20120506
  22. NERISONA [Concomitant]
     Dosage: UNK, prn
     Route: 061
     Dates: start: 20120312, end: 20120425
  23. LOXONIN [Concomitant]
     Dosage: 60 mg, prn
     Route: 048
     Dates: start: 20120608, end: 20120608
  24. LOXONIN [Concomitant]
     Dosage: 60 mg, prn
     Route: 048
     Dates: start: 20120608, end: 20120608
  25. LENDORMIN D [Concomitant]
     Dosage: 0.25 mg, UNK
     Route: 048
     Dates: start: 20120311, end: 20120316
  26. ZYLORIC [Concomitant]
     Dosage: 100 mg, qd
     Route: 048
     Dates: start: 20120427, end: 20120620
  27. MUCOSTA [Concomitant]
     Dosage: 300 mg, qd
     Route: 048
     Dates: start: 20120506
  28. DOGMATYL [Concomitant]
     Dosage: 150 mg, qd
     Route: 048
     Dates: start: 20120507
  29. REFLEX                             /01293201/ [Concomitant]
     Dosage: 15 mg, qd
     Route: 048
     Dates: start: 20120416, end: 20120422

REACTIONS (2)
  - Decreased appetite [Not Recovered/Not Resolved]
  - Nausea [Not Recovered/Not Resolved]
